FAERS Safety Report 5514011-6 (Version None)
Quarter: 2007Q4

REPORT INFORMATION
  Report Type: 
  Country: None (occurrence: None)
  Receive Date: 20071107
  Receipt Date: 20060927
  Transmission Date: 20080405
  Serious: Yes (Other)
  Sender: FDA-Public Use
  Company Number: 2006RL000345

PATIENT
  Age: 77 Year
  Sex: Male
  Weight: 84.8226 kg

DRUGS (10)
  1. RYTHMOL SR [Suspect]
     Indication: ATRIAL FIBRILLATION
     Dosage: 425 MG;BID
     Dates: start: 20060427, end: 20060707
  2. DOXASIN [Concomitant]
  3. QUESTRAN [Concomitant]
  4. VERAPAMIL              /00014302/ [Concomitant]
  5. HYZAAR [Concomitant]
  6. CELEBREX [Concomitant]
  7. COUMADIN [Concomitant]
  8. LASIX [Concomitant]
  9. FLECAINIDE ACETATE [Concomitant]
  10. ATENOLOL [Concomitant]

REACTIONS (3)
  - ATRIAL FLUTTER [None]
  - LUPUS-LIKE SYNDROME [None]
  - MUSCULAR WEAKNESS [None]
